FAERS Safety Report 7179106-2 (Version None)
Quarter: 2010Q4

REPORT INFORMATION
  Report Type: 
  Country: None (occurrence: None)
  Receive Date: 20101221
  Receipt Date: 20101209
  Transmission Date: 20110411
  Serious: No
  Sender: FDA-Public Use
  Company Number: US-PFIZER INC-2010169026

PATIENT
  Sex: Female

DRUGS (8)
  1. TIKOSYN [Suspect]
  2. LIPITOR [Suspect]
     Dosage: 20 MG, UNK DAILY
  3. COZAAR [Concomitant]
  4. TRAZODONE [Concomitant]
  5. PROPRANOLOL [Concomitant]
  6. NEXIUM [Concomitant]
  7. KLONOPIN [Concomitant]
  8. SYNTHROID [Concomitant]

REACTIONS (3)
  - ANXIETY [None]
  - INSOMNIA [None]
  - PSYCHOMOTOR HYPERACTIVITY [None]
